FAERS Safety Report 10397155 (Version 1)
Quarter: 2014Q3

REPORT INFORMATION
  Report Type: Report from Study
  Country: US (occurrence: US)
  Receive Date: 20140820
  Receipt Date: 20140820
  Transmission Date: 20150326
  Serious: Yes (Other)
  Sender: FDA-Public Use
  Company Number: US-GILEAD-2014-0111874

PATIENT
  Age: 35 Year
  Sex: Male

DRUGS (2)
  1. CIDOFOVIR. [Suspect]
     Active Substance: CIDOFOVIR
     Indication: CYTOMEGALOVIRUS CHORIORETINITIS
     Dosage: UNK
     Route: 042
     Dates: start: 199402, end: 1994
  2. CIDOFOVIR. [Suspect]
     Active Substance: CIDOFOVIR
     Dosage: 20 ?G, UNK
     Route: 031

REACTIONS (4)
  - Genotype drug resistance test positive [Unknown]
  - Treatment failure [Unknown]
  - Off label use [Unknown]
  - Nephropathy toxic [Unknown]

NARRATIVE: CASE EVENT DATE: 1994
